FAERS Safety Report 9014181 (Version 1)
Quarter: 2013Q1

REPORT INFORMATION
  Report Type: Spontaneous
  Country: IT (occurrence: IT)
  Receive Date: 20130115
  Receipt Date: 20130115
  Transmission Date: 20140127
  Serious: Yes (Hospitalization)
  Sender: FDA-Public Use
  Company Number: PHHY2013IT003266

PATIENT
  Age: 65 Year
  Sex: Male

DRUGS (8)
  1. SIMVASTATINE [Suspect]
     Indication: DYSLIPIDAEMIA
     Dosage: 40 MG, UNK
     Route: 048
     Dates: start: 19800101, end: 20121218
  2. CARDIASPIRIN [Concomitant]
  3. ESAPENT [Concomitant]
  4. GLIBENCLAMIDE W/METFORMIN HYDROCHLORIDE [Concomitant]
     Indication: TYPE 2 DIABETES MELLITUS
     Dates: start: 19800101, end: 20121219
  5. INSULIN GLULISINE [Concomitant]
     Indication: TYPE 2 DIABETES MELLITUS
  6. INSULIN GLARGINE [Concomitant]
     Indication: TYPE 2 DIABETES MELLITUS
  7. LOSARTAN/HCT [Concomitant]
     Indication: HYPERTENSION
  8. NITROGLYCERIN [Concomitant]
     Indication: ISCHAEMIC CARDIOMYOPATHY

REACTIONS (4)
  - Rhabdomyolysis [Recovering/Resolving]
  - Myalgia [Recovering/Resolving]
  - Hepatitis toxic [Recovering/Resolving]
  - Renal failure acute [Recovering/Resolving]
